FAERS Safety Report 5608018-8 (Version None)
Quarter: 2008Q1

REPORT INFORMATION
  Report Type: 
  Country: None (occurrence: None)
  Receive Date: 20080130
  Receipt Date: 20080130
  Transmission Date: 20080703
  Serious: Yes (Other)
  Sender: FDA-Public Use
  Company Number: A0706258A

PATIENT
  Age: 43 Year
  Sex: Male

DRUGS (1)
  1. COMMIT [Suspect]
     Indication: SMOKING CESSATION THERAPY
     Route: 002
     Dates: start: 20080124

REACTIONS (3)
  - DIZZINESS [None]
  - INTENTIONAL DRUG MISUSE [None]
  - VISUAL DISTURBANCE [None]
